FAERS Safety Report 15314159 (Version 1)
Quarter: 2018Q3

REPORT INFORMATION
  Report Type: Spontaneous
  Country: FR (occurrence: FR)
  Receive Date: 20180824
  Receipt Date: 20180824
  Transmission Date: 20181010
  Serious: Yes (Death, Hospitalization, Other)
  Sender: FDA-Public Use
  Company Number: FR-AUROBINDO-AUR-APL-2018-043143

PATIENT
  Age: 59 Year
  Sex: Male

DRUGS (2)
  1. QGE031 [Suspect]
     Active Substance: INVESTIGATIONAL PRODUCT
     Indication: PEMPHIGOID
     Dosage: UNK
     Route: 065
     Dates: start: 20131030, end: 20131115
  2. BISOPROLOL [Suspect]
     Active Substance: BISOPROLOL
     Indication: ARRHYTHMIA
     Dosage: UNK
     Route: 065
     Dates: start: 20131212, end: 20131212

REACTIONS (7)
  - Death [Fatal]
  - Mouth haemorrhage [Unknown]
  - Cardiac failure [Unknown]
  - Dyspnoea [Unknown]
  - Renal failure [Unknown]
  - Hepatic failure [Unknown]
  - Erysipelas [Unknown]
